FAERS Safety Report 19192572 (Version 3)
Quarter: 2021Q2

REPORT INFORMATION
  Report Type: Spontaneous
  Country: TR (occurrence: TR)
  Receive Date: 20210428
  Receipt Date: 20210512
  Transmission Date: 20210717
  Serious: Yes (Life-Threatening, Hospitalization, Other)
  Sender: FDA-Public Use
  Company Number: TR-LUNDBECK-DKLU3032241

PATIENT
  Age: 6 Year

DRUGS (6)
  1. MEROPENEM. [Interacting]
     Active Substance: MEROPENEM
     Indication: PNEUMONIA
     Route: 065
  2. VIGABATRIN (TABLET) [Concomitant]
     Active Substance: VIGABATRIN
     Indication: PRODUCT USED FOR UNKNOWN INDICATION
     Route: 065
  3. CLOBAZAM. [Interacting]
     Active Substance: CLOBAZAM
     Indication: EPILEPSY
     Route: 065
  4. BACLOFEN. [Concomitant]
     Active Substance: BACLOFEN
     Indication: PRODUCT USED FOR UNKNOWN INDICATION
     Route: 065
  5. CLOBAZAM. [Suspect]
     Active Substance: CLOBAZAM
     Indication: EPILEPTIC ENCEPHALOPATHY
     Route: 065
  6. SULTHIAME [Concomitant]
     Active Substance: SULTHIAME
     Indication: PRODUCT USED FOR UNKNOWN INDICATION
     Route: 065

REACTIONS (4)
  - Miosis [Recovered/Resolved]
  - Drug interaction [Recovering/Resolving]
  - Respiratory arrest [Recovering/Resolving]
  - Somnolence [Recovering/Resolving]
